FAERS Safety Report 10074019 (Version 1)
Quarter: 2014Q2

REPORT INFORMATION
  Report Type: Spontaneous
  Country: US (occurrence: US)
  Receive Date: 20140411
  Receipt Date: 20140411
  Transmission Date: 20141212
  Serious: No
  Sender: FDA-Public Use
  Company Number: US-SA-2013SA128099

PATIENT
  Age: 50 Year
  Sex: Female

DRUGS (2)
  1. ALLEGRA D [Suspect]
     Indication: NASAL CONGESTION
     Dosage: DOSE:-180 MG/240 MG
     Route: 048
     Dates: start: 2013
  2. ALLEGRA D [Suspect]
     Indication: INFECTION
     Dosage: DOSE:-180 MG/240 MG
     Route: 048
     Dates: start: 2013

REACTIONS (3)
  - Medication residue present [Not Recovered/Not Resolved]
  - Malaise [Not Recovered/Not Resolved]
  - Drug ineffective [Unknown]
